FAERS Safety Report 10525914 (Version 1)
Quarter: 2014Q4

REPORT INFORMATION
  Report Type: Spontaneous
  Country: FR (occurrence: FR)
  Receive Date: 20141017
  Receipt Date: 20141017
  Transmission Date: 20150528
  Serious: Yes (Hospitalization)
  Sender: FDA-Public Use
  Company Number: FR-FRI-1000071637

PATIENT
  Age: 86 Year
  Sex: Male

DRUGS (13)
  1. RIFAMPICINE [Concomitant]
     Active Substance: RIFAMPIN
     Dates: end: 20140801
  2. IMOVANE [Suspect]
     Active Substance: ZOPICLONE
     Route: 048
     Dates: end: 20140804
  3. CEFTRIAXONE. [Suspect]
     Active Substance: CEFTRIAXONE
     Indication: LUNG DISORDER
     Route: 051
     Dates: start: 20140801, end: 20140804
  4. CEFTRIAXONE. [Suspect]
     Active Substance: CEFTRIAXONE
     Route: 051
     Dates: start: 20140813, end: 20140821
  5. MILNACIPRAN [Suspect]
     Active Substance: MILNACIPRAN
     Indication: DEPRESSION
     Dosage: 50 MG
     Route: 048
     Dates: start: 2014, end: 20140805
  6. OFLOCET [Concomitant]
     Active Substance: OFLOXACIN
     Dates: end: 20140801
  7. RULID [Suspect]
     Active Substance: ROXITHROMYCIN
     Indication: LUNG DISORDER
     Route: 048
     Dates: start: 20140802, end: 20140804
  8. LOVENOX [Concomitant]
     Active Substance: ENOXAPARIN SODIUM
  9. DOMPERIDONE [Concomitant]
     Active Substance: DOMPERIDONE
  10. PRIMPERAN [Concomitant]
     Active Substance: METOCLOPRAMIDE HYDROCHLORIDE
  11. BISOCE [Concomitant]
     Active Substance: BISOPROLOL
  12. FORLAX [Concomitant]
     Active Substance: POLYETHYLENE GLYCOL 4000
  13. SPASFON [Concomitant]
     Active Substance: PHLOROGLUCINOL

REACTIONS (3)
  - Lung disorder [Unknown]
  - Hepatitis acute [Recovered/Resolved]
  - Hepatic failure [Recovered/Resolved]

NARRATIVE: CASE EVENT DATE: 20140801
